FAERS Safety Report 5645282-3 (Version None)
Quarter: 2008Q1

REPORT INFORMATION
  Report Type: 
  Country: None (occurrence: None)
  Receive Date: 20080229
  Receipt Date: 20080218
  Transmission Date: 20080703
  Serious: Yes (Hospitalization)
  Sender: FDA-Public Use
  Company Number: DE-ROCHE-548224

PATIENT
  Age: 46 Year
  Sex: Female

DRUGS (9)
  1. CAPECITABINE [Suspect]
     Indication: BREAST CANCER METASTATIC
     Dosage: DOSE REPORTED AS 2X 1000 MG/DAY,  GIVEN DAY 1 - 14 EVERY 21 DAYS.
     Route: 048
     Dates: start: 20050602
  2. PACLITAXEL [Suspect]
     Indication: BREAST CANCER METASTATIC
     Dosage: PER PROTOCOL GIVEN ON DAY 1 EVERY 8 DAYS.
     Route: 042
     Dates: start: 20050602
  3. EPIRUBICIN [Suspect]
     Indication: BREAST CANCER METASTATIC
     Dosage: FREQUENCY REPORTED AS 3WK, PER PROTOCOL, GIVEN ON DAY 1 EVERY 15 DAYS.
     Route: 042
     Dates: start: 20050331, end: 20050512
  4. CYCLOPHOSPHAMIDE [Suspect]
     Indication: BREAST CANCER METASTATIC
     Dosage: FREQUENCY REPORTED AS Q2W.  PER PROTOCOL, GIVEN ON DAY 1 EVERY 15 DAYS.
     Route: 042
     Dates: start: 20050331, end: 20050512
  5. DESAMETASONE [Concomitant]
     Dosage: FREQUENCY REPORTED AS 1X IV AND 1X1 PO.
     Dates: start: 20050331
  6. ERYTHROPOIETINE [Concomitant]
     Route: 058
     Dates: start: 20050331
  7. GRANISETRON [Concomitant]
     Dosage: REPORTED AS EVERY 1+2.
     Route: 048
     Dates: start: 20050331
  8. UNSPECIFIED MEDICATION [Concomitant]
     Dosage: REPORTED AS DEMAGTH, FREQUENCY ILLEGIBLE.
     Route: 042
     Dates: start: 20050602
  9. UNSPECIFIED MEDICATION [Concomitant]
     Dosage: REPORTED AS PAUIHAIN, FREQUENCY ILLEGIBLE.
     Route: 042
     Dates: start: 20050602

REACTIONS (1)
  - WOUND ABSCESS [None]
